FAERS Safety Report 22135778 (Version 1)
Quarter: 2023Q1

REPORT INFORMATION
  Report Type: Spontaneous
  Country: US (occurrence: None)
  Receive Date: 20230323
  Receipt Date: 20230323
  Transmission Date: 20230418
  Serious: Yes (Other)
  Sender: FDA-Public Use
  Company Number: None

PATIENT
  Age: 28 Year
  Sex: Male
  Weight: 110.25 kg

DRUGS (7)
  1. ASENAPINE [Suspect]
     Active Substance: ASENAPINE
     Indication: Affective disorder
     Dosage: FREQUENCY : TWICE A DAY;?
     Route: 060
     Dates: start: 20210803
  2. BIKTARVY [Concomitant]
     Active Substance: BICTEGRAVIR SODIUM\EMTRICITABINE\TENOFOVIR ALAFENAMIDE FUMARATE
  3. KLONOPIN [Concomitant]
     Active Substance: CLONAZEPAM
  4. METHYLPHENIDATE [Concomitant]
     Active Substance: METHYLPHENIDATE
  5. Trintrillex [Concomitant]
  6. ASENAPINE [Concomitant]
     Active Substance: ASENAPINE
  7. DIETARY SUPPLEMENT [Concomitant]
     Active Substance: DIETARY SUPPLEMENT

REACTIONS (5)
  - Product substitution issue [None]
  - Insurance issue [None]
  - Formication [None]
  - Sensory disturbance [None]
  - Adverse drug reaction [None]

NARRATIVE: CASE EVENT DATE: 20211201
